FAERS Safety Report 4883219-5 (Version None)
Quarter: 2006Q1

REPORT INFORMATION
  Report Type: 
  Country: None (occurrence: None)
  Receive Date: 20060117
  Receipt Date: 20060117
  Transmission Date: 20060701
  Serious: Yes (Other)
  Sender: FDA-Public Use
  Company Number: None

PATIENT
  Age: 32 Year
  Sex: Male

DRUGS (1)
  1. CUPRIMINE [Suspect]
     Dosage: ORAL; 250.0 MILLIGRAM
     Route: 048
     Dates: start: 20040816, end: 20051201

REACTIONS (2)
  - DIZZINESS [None]
  - FATIGUE [None]
